FAERS Safety Report 4445003-6 (Version None)
Quarter: 2004Q3

REPORT INFORMATION
  Report Type: 
  Country: None (occurrence: None)
  Receive Date: 20040907
  Receipt Date: 20040823
  Transmission Date: 20050211
  Serious: No
  Sender: FDA-Public Use
  Company Number: 2004AC00243

PATIENT
  Age: 60 Year
  Sex: Female
  Weight: 72 kg

DRUGS (7)
  1. ROPIVACAINE [Suspect]
     Indication: POSTOPERATIVE ANALGESIA
     Dosage: 25 ML ONCE
  2. ROPIVACAINE [Suspect]
     Indication: POSTOPERATIVE ANALGESIA
     Dosage: 20 ML  ONCE
  3. ROPIVACAINE [Suspect]
     Indication: POSTOPERATIVE ANALGESIA
     Dosage: 5 ML/HR IV
     Route: 042
  4. ENALAPRIL MALEATE [Concomitant]
  5. MEPROBAMATE-ACEPROMETAZINE [Concomitant]
  6. LORAZEPAM [Concomitant]
  7. SALBUTAMOL NEBULIZER [Concomitant]

REACTIONS (8)
  - FEMORAL NERVE INJURY [None]
  - FEMORAL NERVE PALSY [None]
  - JOINT STIFFNESS [None]
  - MOTOR DYSFUNCTION [None]
  - NERVE ROOT INJURY [None]
  - NEUROTOXICITY [None]
  - PROCEDURAL COMPLICATION [None]
  - SENSORY LOSS [None]
